FAERS Safety Report 7610269-8 (Version None)
Quarter: 2011Q3

REPORT INFORMATION
  Report Type: 
  Country: None (occurrence: None)
  Receive Date: 20110713
  Receipt Date: 20110713
  Transmission Date: 20111222
  Serious: No
  Sender: FDA-Public Use
  Company Number: None

PATIENT
  Sex: Female
  Weight: 64.8644 kg

DRUGS (1)
  1. RELPAX [Suspect]
     Indication: MIGRAINE
     Dosage: RELPAX 40MG 1 P.O.
     Route: 048
     Dates: start: 20110429

REACTIONS (4)
  - SOMNOLENCE [None]
  - UNEVALUABLE EVENT [None]
  - IMPAIRED WORK ABILITY [None]
  - STUPOR [None]
